FAERS Safety Report 7115380-6 (Version None)
Quarter: 2010Q4

REPORT INFORMATION
  Report Type: 
  Country: None (occurrence: None)
  Receive Date: 20101117
  Receipt Date: 20101117
  Transmission Date: 20110411
  Serious: Yes (Life-Threatening)
  Sender: FDA-Public Use
  Company Number: None

PATIENT
  Age: 41 Year
  Sex: Female

DRUGS (1)
  1. PAROXETINE HYDROCHLORIDE [Suspect]
     Indication: DEPRESSION
     Dosage: ONE PILL DAILY PO
     Route: 048
     Dates: start: 20090115, end: 20101115

REACTIONS (2)
  - ANAEMIA [None]
  - WHITE BLOOD CELL COUNT INCREASED [None]
